FAERS Safety Report 18931928 (Version 1)
Quarter: 2021Q1

REPORT INFORMATION
  Report Type: Spontaneous
  Country: US (occurrence: US)
  Receive Date: 20210223
  Receipt Date: 20210223
  Transmission Date: 20210420
  Serious: No
  Sender: FDA-Public Use
  Company Number: US-ROCHE-2756135

PATIENT
  Sex: Female

DRUGS (2)
  1. EVRYSDI [Suspect]
     Active Substance: RISDIPLAM
     Indication: SPINAL MUSCULAR ATROPHY
     Route: 065
     Dates: start: 202008
  2. SPINRAZA [Concomitant]
     Active Substance: NUSINERSEN
     Indication: SPINAL MUSCULAR ATROPHY
     Dates: start: 201802

REACTIONS (5)
  - Speech disorder [Unknown]
  - Diarrhoea [Recovering/Resolving]
  - Dysphagia [Recovering/Resolving]
  - Dyspnoea [Unknown]
  - Abdominal distension [Recovering/Resolving]
